FAERS Safety Report 9163315 (Version 3)
Quarter: 2013Q1

REPORT INFORMATION
  Report Type: Spontaneous
  Country: JP (occurrence: JP)
  Receive Date: 20130314
  Receipt Date: 20130326
  Transmission Date: 20140127
  Serious: Yes (Life-Threatening, Other)
  Sender: FDA-Public Use
  Company Number: JP-ROCHE-1201007

PATIENT
  Age: 36 Year
  Sex: Male

DRUGS (11)
  1. CELLCEPT [Suspect]
     Indication: PROPHYLAXIS AGAINST GRAFT VERSUS HOST DISEASE
     Dosage: DOSAGE IS UNCERTAIN
     Route: 048
  2. CELLCEPT [Suspect]
     Indication: OFF LABEL USE
  3. EQUINE ANTITHYMOCYTE IMMUNOGLOBULIN [Concomitant]
     Indication: APLASTIC ANAEMIA
     Dosage: DOSAGE IS UNCERTAIN
     Route: 065
  4. FLUDARABINE PHOSPHATE [Concomitant]
     Indication: APLASTIC ANAEMIA
     Dosage: DOSAGE IS UNCERTAIN
     Route: 065
     Dates: start: 201101
  5. FLUDARABINE PHOSPHATE [Concomitant]
     Indication: APLASTIC ANAEMIA
     Dosage: DOSAGE IS UNCERTAIN.
     Route: 065
     Dates: start: 201102
  6. FLUDARABINE PHOSPHATE [Concomitant]
     Indication: APLASTIC ANAEMIA
     Dosage: DOSAGE IS UNCERTAIN.
     Route: 065
     Dates: start: 201105
  7. BUSULFAN [Concomitant]
     Indication: APLASTIC ANAEMIA
     Dosage: DOSAGE IS UNCERTAIN
     Route: 065
     Dates: start: 201101
  8. CYCLOPHOSPHAMIDE [Concomitant]
     Indication: APLASTIC ANAEMIA
     Dosage: DOSAGE IS UNCERTAIN
     Route: 065
     Dates: start: 201102
  9. CYCLOPHOSPHAMIDE [Concomitant]
     Indication: APLASTIC ANAEMIA
     Dosage: DOSAGE IS UNCERTAIN.
     Route: 065
     Dates: start: 201105
  10. TACROLIMUS HYDRATE [Concomitant]
     Indication: PROPHYLAXIS AGAINST GRAFT VERSUS HOST DISEASE
     Dosage: DOSAGE IS UNCERTAIN
     Route: 065
  11. METHOTREXATE [Concomitant]
     Indication: PROPHYLAXIS AGAINST GRAFT VERSUS HOST DISEASE
     Dosage: DOSAGE IS UNCERTAIN
     Route: 065

REACTIONS (4)
  - Engraftment syndrome [Recovered/Resolved with Sequelae]
  - Thrombotic microangiopathy [Recovering/Resolving]
  - Posterior reversible encephalopathy syndrome [Recovered/Resolved with Sequelae]
  - Cystitis haemorrhagic [Unknown]
